FAERS Safety Report 9751714 (Version 1)
Quarter: 2013Q4

REPORT INFORMATION
  Report Type: Other
  Country: GB (occurrence: GB)
  Receive Date: 20131213
  Receipt Date: 20131213
  Transmission Date: 20140711
  Serious: Yes (Disabling, Other)
  Sender: FDA-Public Use
  Company Number: GB-GLENMARK GENERICS INC.-2013GMK007791

PATIENT
  Age: 54 Year
  Sex: Female
  Weight: 70 kg

DRUGS (3)
  1. MONTELUKAST [Suspect]
     Indication: URTICARIA
     Dosage: 10 MG, UNK
     Route: 048
     Dates: start: 20130806, end: 20131001
  2. DESLORATADINE [Concomitant]
     Indication: URTICARIA
     Dosage: 15 MG, OD
     Route: 048
     Dates: start: 20121003
  3. RUPATADINE [Concomitant]
     Indication: URTICARIA
     Dosage: 10 MG, UNK
     Route: 048
     Dates: start: 20130806

REACTIONS (2)
  - Nightmare [Recovered/Resolved]
  - Abnormal dreams [Recovered/Resolved]
